FAERS Safety Report 8928971 (Version 1)
Quarter: 2012Q4

REPORT INFORMATION
  Report Type: Spontaneous
  Country: US (occurrence: None)
  Receive Date: 20121126
  Receipt Date: 20121126
  Transmission Date: 20130627
  Serious: No
  Sender: FDA-Public Use
  Company Number: None

PATIENT
  Age: 48 Year
  Sex: Female
  Weight: 83.92 kg

DRUGS (1)
  1. NORETHINDRONE [Suspect]
     Indication: MENSTRUAL DISORDER
     Dates: start: 20121026, end: 20121108

REACTIONS (2)
  - Mood altered [None]
  - Depression [None]
